FAERS Safety Report 5287545-X (Version None)
Quarter: 2007Q1

REPORT INFORMATION
  Report Type: 
  Country: None (occurrence: None)
  Receive Date: 20070108
  Receipt Date: 20060605
  Transmission Date: 20070707
  Serious: Yes (Other)
  Sender: FDA-Public Use
  Company Number: 007659

PATIENT
  Age: 64 Year
  Sex: Female

DRUGS (5)
  1. ESTROPIPATE [Suspect]
     Dosage: ORAL
     Route: 048
     Dates: start: 19790101, end: 20040101
  2. PREMARIN [Suspect]
     Dosage: ORAL
     Route: 048
     Dates: start: 19790101, end: 20040101
  3. PROVERA [Suspect]
     Dosage: ORAL
     Route: 047
     Dates: start: 19790101, end: 20040101
  4. OGEN [Suspect]
     Dosage: ORAL
     Route: 048
     Dates: start: 19790101, end: 20040101
  5. PREMPRO [Suspect]
     Dosage: ORAL
     Route: 048
     Dates: start: 19790101, end: 20040101

REACTIONS (1)
  - BREAST CANCER [None]
